FAERS Safety Report 6839125-X (Version None)
Quarter: 2010Q3

REPORT INFORMATION
  Report Type: 
  Country: None (occurrence: None)
  Receive Date: 20100714
  Receipt Date: 20100702
  Transmission Date: 20110219
  Serious: Yes (Other)
  Sender: FDA-Public Use
  Company Number: PH-JNJFOC-20100607435

PATIENT
  Sex: Male
  Weight: 92 kg

DRUGS (5)
  1. STELARA [Suspect]
     Indication: PSORIASIS
     Route: 058
  2. STELARA [Suspect]
     Route: 058
  3. STELARA [Suspect]
     Dosage: ^1 ADDITIONAL VIAL GIVEN^
     Route: 058
  4. STELARA [Suspect]
     Route: 058
  5. ISONIAZID W/PYRIDOXINE [Concomitant]
     Indication: TUBERCULIN TEST POSITIVE
     Route: 048

REACTIONS (2)
  - PSORIASIS [None]
  - STREPTOCOCCUS TEST POSITIVE [None]
